FAERS Safety Report 23081378 (Version 1)
Quarter: 2023Q4

REPORT INFORMATION
  Report Type: Spontaneous
  Country: CN (occurrence: CN)
  Receive Date: 20231018
  Receipt Date: 20231018
  Transmission Date: 20240110
  Serious: Yes (Hospitalization, Other)
  Sender: FDA-Public Use
  Company Number: CN-GLAXOSMITHKLINE-CNCH2023APC048529

PATIENT

DRUGS (1)
  1. DICLOFENAC SODIUM [Suspect]
     Active Substance: DICLOFENAC\DICLOFENAC SODIUM
     Indication: Pyrexia
     Dosage: 75 MG, QD
     Route: 048
     Dates: start: 20230927, end: 20230930

REACTIONS (11)
  - Haematemesis [Recovered/Resolved]
  - Oesophageal mucosal tear [Recovering/Resolving]
  - Gastric ulcer haemorrhage [Recovering/Resolving]
  - Varices oesophageal [Recovering/Resolving]
  - Oesophageal varices haemorrhage [Recovering/Resolving]
  - Gastric varices [Recovering/Resolving]
  - Gastric varices haemorrhage [Recovering/Resolving]
  - Melaena [Recovered/Resolved]
  - Gastric cancer [Recovering/Resolving]
  - Gastric haemorrhage [Recovering/Resolving]
  - Product use in unapproved indication [Unknown]

NARRATIVE: CASE EVENT DATE: 20230927
